FAERS Safety Report 10165736 (Version 1)
Quarter: 2014Q2

REPORT INFORMATION
  Report Type: Spontaneous
  Country: US (occurrence: US)
  Receive Date: 20140510
  Receipt Date: 20140510
  Transmission Date: 20141212
  Serious: No
  Sender: FDA-Public Use
  Company Number: US-BRISTOL-MYERS SQUIBB COMPANY-19919471

PATIENT
  Age: 55 Year
  Sex: 0

DRUGS (12)
  1. BYDUREON [Suspect]
     Dates: start: 20131024
  2. SIMVASTATIN [Concomitant]
  3. SPIRIVA [Concomitant]
  4. SPIRONOLACTONE [Concomitant]
  5. SYMBICORT [Concomitant]
     Dosage: 1DF:160
  6. NYSTATIN [Concomitant]
  7. METFORMIN [Concomitant]
  8. MAGNESIUM [Concomitant]
  9. LYRICA [Concomitant]
  10. LISINOPRIL [Concomitant]
  11. LANTUS [Concomitant]
     Dosage: 1DF:100 PER UNIT
  12. ALBUTEROL [Concomitant]

REACTIONS (1)
  - Urticaria [Unknown]
